FAERS Safety Report 5873985-4 (Version None)
Quarter: 2008Q3

REPORT INFORMATION
  Report Type: 
  Country: None (occurrence: None)
  Receive Date: 20080905
  Receipt Date: 20080905
  Transmission Date: 20090109
  Serious: No
  Sender: FDA-Public Use
  Company Number: None

PATIENT
  Age: 33 Year
  Sex: Male
  Weight: 84 kg

DRUGS (3)
  1. ABELCET [Suspect]
     Indication: MENINGITIS CRYPTOCOCCAL
     Dosage: 430MG DAILY IV
     Route: 042
     Dates: start: 20080831, end: 20080904
  2. ZOFRAN [Concomitant]
  3. FLUCONAZOLE [Concomitant]

REACTIONS (2)
  - DEAFNESS [None]
  - OTOTOXICITY [None]
